FAERS Safety Report 7490055-2 (Version None)
Quarter: 2011Q2

REPORT INFORMATION
  Report Type: 
  Country: None (occurrence: None)
  Receive Date: 20110519
  Receipt Date: 20110510
  Transmission Date: 20111010
  Serious: Yes (Death, Other)
  Sender: FDA-Public Use
  Company Number: CA-JNJFOC-20110504236

PATIENT
  Age: 47 Year
  Sex: Male

DRUGS (4)
  1. KEMADRIN [Concomitant]
     Indication: PRODUCT USED FOR UNKNOWN INDICATION
     Route: 065
  2. RISPERDAL CONSTA [Suspect]
     Route: 030
  3. ZYPREXA [Suspect]
     Indication: PRODUCT USED FOR UNKNOWN INDICATION
     Dosage: 65.0 DAYS
     Route: 065
  4. RISPERDAL CONSTA [Suspect]
     Indication: PRODUCT USED FOR UNKNOWN INDICATION
     Route: 030

REACTIONS (8)
  - VENTRICULAR HYPERTROPHY [None]
  - INCREASED APPETITE [None]
  - WEIGHT INCREASED [None]
  - DELIRIUM [None]
  - PULMONARY EMBOLISM [None]
  - PULMONARY OEDEMA [None]
  - DELUSION [None]
  - SPEECH DISORDER [None]
